FAERS Safety Report 9349595 (Version 3)
Quarter: 2014Q1

REPORT INFORMATION
  Report Type: Spontaneous
  Country: US (occurrence: US)
  Receive Date: 20130614
  Receipt Date: 20140224
  Transmission Date: 20141002
  Serious: Yes (Death, Hospitalization)
  Sender: FDA-Public Use
  Company Number: US-B.I. PHARMACEUTICALS,INC./RIDGEFIELD-2013-BI-16566BP

PATIENT
  Sex: Male
  Weight: 77.11 kg

DRUGS (19)
  1. PRADAXA [Suspect]
     Indication: CEREBROVASCULAR ACCIDENT PROPHYLAXIS
     Dosage: 300 MG
     Route: 048
     Dates: start: 20110712, end: 20111007
  2. PRADAXA [Suspect]
     Indication: THROMBOSIS PROPHYLAXIS
  3. PRADAXA [Suspect]
     Indication: ATRIAL FIBRILLATION
  4. DIOVAN [Concomitant]
     Dosage: 320 MG
     Route: 065
  5. ZOCOR [Concomitant]
     Dosage: 10 MG
     Route: 065
  6. CARDIZEM [Concomitant]
     Route: 065
  7. TYLENOL [Concomitant]
     Route: 065
  8. KEPPRA [Concomitant]
     Dosage: 1000 MG
     Route: 065
  9. LABETALOL [Concomitant]
     Dosage: 1800 MG
     Route: 065
  10. DIGOXIN [Concomitant]
     Dosage: 0.125 MG
     Route: 065
  11. CARDURA [Concomitant]
     Dosage: 4 MG
     Route: 065
  12. PRILOSEC [Concomitant]
     Dosage: 20 MG
     Route: 065
  13. HYDROCHLOROTHIAZIDE [Concomitant]
     Dosage: 12.5 MG
     Route: 065
  14. TEGRETOL [Concomitant]
     Dosage: 300 MG
     Route: 065
  15. SYNTHROID [Concomitant]
     Dosage: 150 MCG
     Route: 065
  16. PYRIDIUM [Concomitant]
     Route: 065
  17. VITAMINS [Concomitant]
     Route: 065
  18. COLACE [Concomitant]
     Route: 065
  19. FERROUS SULFATE [Concomitant]
     Route: 065

REACTIONS (5)
  - Cerebral haemorrhage [Fatal]
  - Gastrointestinal haemorrhage [Unknown]
  - Renal haemorrhage [Unknown]
  - Epistaxis [Unknown]
  - Cerebral infarction [Unknown]
